FAERS Safety Report 18782390 (Version 2)
Quarter: 2021Q1

REPORT INFORMATION
  Report Type: Spontaneous
  Country: JP (occurrence: JP)
  Receive Date: 20210125
  Receipt Date: 20210316
  Transmission Date: 20210419
  Serious: Yes (Other)
  Sender: FDA-Public Use
  Company Number: JP-TEVA-2021-JP-000220J

PATIENT
  Age: 86 Year
  Sex: Male
  Weight: 40 kg

DRUGS (7)
  1. SOLACET F [Concomitant]
     Active Substance: CALCIUM CHLORIDE\POTASSIUM CHLORIDE\SODIUM ACETATE\SODIUM CHLORIDE
     Route: 065
     Dates: start: 20201220
  2. SULBACILLIN [Concomitant]
     Active Substance: AMPICILLIN SODIUM\SULBACTAM SODIUM
     Route: 065
     Dates: start: 20201220
  3. ISOTONIC SODIUM CHLORIDE SOLUTION [Concomitant]
     Active Substance: SODIUM CHLORIDE
     Route: 065
     Dates: start: 20201220
  4. SEISHOKU [Concomitant]
     Active Substance: SODIUM CHLORIDE
     Route: 065
     Dates: start: 20201220
  5. HEPARIN [Concomitant]
     Active Substance: HEPARIN SODIUM
     Route: 065
     Dates: start: 20201220
  6. OMEPRAZOLE. [Concomitant]
     Active Substance: OMEPRAZOLE
     Route: 065
     Dates: start: 20201220
  7. CERCINE [Suspect]
     Active Substance: DIAZEPAM
     Indication: FACIAL SPASM
     Dosage: 5 MILLIGRAM DAILY;
     Route: 042
     Dates: start: 20201221, end: 20201221

REACTIONS (3)
  - Shock [Recovered/Resolved]
  - Product use in unapproved indication [Unknown]
  - Blood pressure decreased [Recovered/Resolved]

NARRATIVE: CASE EVENT DATE: 20201221
